FAERS Safety Report 9555967 (Version 1)
Quarter: 2013Q3

REPORT INFORMATION
  Report Type: Spontaneous
  Country: US (occurrence: None)
  Receive Date: 20130726
  Receipt Date: 20130726
  Transmission Date: 20140515
  Serious: Yes (Hospitalization)
  Sender: FDA-Public Use
  Company Number: UTC-023154

PATIENT
  Age: 69 Year
  Sex: Male
  Weight: 139.1 kg

DRUGS (2)
  1. REMODULIN [Suspect]
     Indication: PULMONARY ARTERIAL HYPERTENSION
     Dosage: 93.6 UG/KG (0.065 UG/KG, 1 IN 1 MIN), INTRAVENOUS DRIP
     Route: 041
     Dates: start: 20100617
  2. COUMADIN (WARFARIN SODIUM) [Concomitant]

REACTIONS (3)
  - Device dislocation [None]
  - Asthenia [None]
  - Fatigue [None]
